FAERS Safety Report 7457785-X (Version None)
Quarter: 2011Q2

REPORT INFORMATION
  Report Type: 
  Country: None (occurrence: None)
  Receive Date: 20110426
  Receipt Date: 20110411
  Transmission Date: 20111010
  Serious: Yes (Life-Threatening, Other)
  Sender: FDA-Public Use
  Company Number: IDA-00532

PATIENT
  Age: 52 Year
  Sex: Female

DRUGS (3)
  1. DIAZEPAM [Concomitant]
  2. LIDOCAINE HYDROCHLORIDE/EPINEPHRINE (EPINEPHRINE, LIDOCAINE) ADDITIVE: [Suspect]
     Dosage: DAILY DOSE: 40 ML WITH 1:200,000 EPINEPHRINE; INJECTION
     Route: 030
  3. PROPRANOLOL [Suspect]
     Indication: HYPERTENSION
     Dosage: DAILY DOSE: 20 MG TID

REACTIONS (3)
  - DRUG INTERACTION [None]
  - BRADYCARDIA [None]
  - HYPERTENSION [None]
